FAERS Safety Report 10431278 (Version 1)
Quarter: 2014Q3

REPORT INFORMATION
  Report Type: Spontaneous
  Country: GB (occurrence: GB)
  Receive Date: 20140904
  Receipt Date: 20140904
  Transmission Date: 20150326
  Serious: Yes (Life-Threatening, Hospitalization, Other)
  Sender: FDA-Public Use
  Company Number: GB-PFIZER INC-2014245704

PATIENT
  Age: 19 Year
  Sex: Male
  Weight: 66.67 kg

DRUGS (1)
  1. CHAMPIX [Suspect]
     Active Substance: VARENICLINE TARTRATE
     Indication: SMOKING CESSATION THERAPY
     Dosage: 2 DF, UNK
     Route: 048
     Dates: start: 20140801, end: 20140824

REACTIONS (6)
  - Hypertension [Unknown]
  - Convulsion [Recovered/Resolved]
  - Flat affect [Unknown]
  - Irritability [Unknown]
  - Restlessness [Unknown]
  - Mood altered [Unknown]

NARRATIVE: CASE EVENT DATE: 20140824
